FAERS Safety Report 19759760 (Version 1)
Quarter: 2021Q3

REPORT INFORMATION
  Report Type: Spontaneous
  Country: AU (occurrence: AU)
  Receive Date: 20210830
  Receipt Date: 20210830
  Transmission Date: 20211014
  Serious: Yes (Death)
  Sender: FDA-Public Use
  Company Number: AU-JNJFOC-20210849241

PATIENT
  Age: 10 Week
  Sex: Male

DRUGS (1)
  1. PARACETAMOL [Suspect]
     Active Substance: ACETAMINOPHEN
     Indication: DIARRHOEA
     Route: 065

REACTIONS (2)
  - Dehydration [Fatal]
  - Product use in unapproved indication [Fatal]
